FAERS Safety Report 4335462-1 (Version None)
Quarter: 2004Q2

REPORT INFORMATION
  Report Type: 
  Country: None (occurrence: None)
  Receive Date: 20040406
  Receipt Date: 20040322
  Transmission Date: 20050107
  Serious: Yes (Hospitalization)
  Sender: FDA-Public Use
  Company Number: 194827

PATIENT
  Age: 53 Year
  Sex: Female
  Weight: 65.7716 kg

DRUGS (7)
  1. AVONEX [Suspect]
     Indication: MULTIPLE SCLEROSIS
     Dosage: 30 MCG QW IM
     Route: 030
     Dates: start: 19960101
  2. OXYCONTIN [Concomitant]
  3. AMBIEN [Concomitant]
  4. TRILEPTAL [Concomitant]
  5. CELEXA [Concomitant]
  6. KLONOPIN [Concomitant]
  7. ZYDONE [Concomitant]

REACTIONS (11)
  - DEHYDRATION [None]
  - DEPRESSION [None]
  - HANGOVER [None]
  - HEADACHE [None]
  - INFLUENZA LIKE ILLNESS [None]
  - MULTIPLE SCLEROSIS RELAPSE [None]
  - NECK PAIN [None]
  - NERVOUSNESS [None]
  - PAIN EXACERBATED [None]
  - SLEEP DISORDER [None]
  - SLEEP WALKING [None]
